FAERS Safety Report 14028052 (Version 1)
Quarter: 2017Q3

REPORT INFORMATION
  Report Type: Spontaneous
  Country: CA (occurrence: None)
  Receive Date: 20170930
  Receipt Date: 20170930
  Transmission Date: 20171128
  Serious: Yes (Hospitalization)
  Sender: FDA-Public Use
  Company Number: None

PATIENT
  Age: 3 Year
  Sex: Male
  Weight: 11.5 kg

DRUGS (5)
  1. MERCAPTOPURINE. [Suspect]
     Active Substance: MERCAPTOPURINE
     Dates: end: 20170906
  2. CYTARABINE. [Suspect]
     Active Substance: CYTARABINE
     Dates: end: 20170903
  3. VINCRISTINE SULFATE. [Suspect]
     Active Substance: VINCRISTINE SULFATE
     Dates: end: 20170914
  4. CYCLOPHOSPHAMIDE. [Suspect]
     Active Substance: CYCLOPHOSPHAMIDE
     Dates: end: 20170824
  5. ONCASPAR [Suspect]
     Active Substance: PEGASPARGASE
     Dosage: 1425 UNIT
     Dates: end: 20170907

REACTIONS (5)
  - Staphylococcal infection [None]
  - Febrile neutropenia [None]
  - Hepatic infection [None]
  - Bacteraemia [None]
  - Hepatomegaly [None]

NARRATIVE: CASE EVENT DATE: 20170927
